FAERS Safety Report 7309909-2 (Version None)
Quarter: 2011Q1

REPORT INFORMATION
  Report Type: 
  Country: None (occurrence: None)
  Receive Date: 20110210
  Receipt Date: 20110207
  Transmission Date: 20110831
  Serious: Yes (Life-Threatening, Hospitalization, Other)
  Sender: FDA-Public Use
  Company Number: 2010SP023349

PATIENT
  Age: 63 Year
  Sex: Female
  Weight: 57 kg

DRUGS (11)
  1. LANSOPRAZOLE [Concomitant]
  2. OXYCODONE [Concomitant]
  3. TEMOZOLOMIDE [Suspect]
     Indication: GLIOBLASTOMA MULTIFORME
     Dosage: PO
     Route: 048
     Dates: start: 20100302, end: 20100328
  4. ZOLPIDEM TARTRATE [Concomitant]
  5. BISACODYL [Concomitant]
  6. ABT-888 [Suspect]
     Indication: GLIOBLASTOMA MULTIFORME
     Dosage: (10 MG; QD; PO) (10 MG; BID; PO)
     Route: 048
     Dates: start: 20100302, end: 20100328
  7. ABT-888 [Suspect]
     Indication: GLIOBLASTOMA MULTIFORME
     Dosage: (10 MG; QD; PO) (10 MG; BID; PO)
     Route: 048
     Dates: start: 20100301, end: 20100301
  8. DUCOSATE SODIUM [Concomitant]
  9. DEXAMETHASONE [Concomitant]
  10. ASPIRIN [Concomitant]
  11. MACROGEL [Concomitant]

REACTIONS (7)
  - FATIGUE [None]
  - DRUG INEFFECTIVE [None]
  - ARTHRALGIA [None]
  - FEBRILE NEUTROPENIA [None]
  - BONE PAIN [None]
  - THROMBOCYTOPENIA [None]
  - PAIN [None]
